FAERS Safety Report 7536915-5 (Version None)
Quarter: 2011Q2

REPORT INFORMATION
  Report Type: 
  Country: None (occurrence: None)
  Receive Date: 20110609
  Receipt Date: 20110531
  Transmission Date: 20111010
  Serious: Yes (Other)
  Sender: FDA-Public Use
  Company Number: US-RB-025654-11

PATIENT
  Age: 75 Year
  Sex: Female

DRUGS (3)
  1. EVISTA [Concomitant]
     Indication: PRODUCT USED FOR UNKNOWN INDICATION
  2. MUCINEX DM [Suspect]
     Dosage: PATIENT TOOK ONE TABLET ON 30-MAY-2011
     Route: 048
  3. LIPITOR [Concomitant]
     Indication: PRODUCT USED FOR UNKNOWN INDICATION

REACTIONS (2)
  - SYNCOPE [None]
  - FEELING ABNORMAL [None]
